FAERS Safety Report 5487471-7 (Version None)
Quarter: 2007Q4

REPORT INFORMATION
  Report Type: 
  Country: None (occurrence: None)
  Receive Date: 20071016
  Receipt Date: 20071004
  Transmission Date: 20080405
  Serious: Yes (Other)
  Sender: FDA-Public Use
  Company Number: US-PFIZER INC-2007083459

PATIENT
  Sex: Male
  Weight: 82.6 kg

DRUGS (5)
  1. XALATAN [Suspect]
     Indication: OCULAR HYPERTENSION
  2. MESALAMINE [Suspect]
     Indication: CROHN'S DISEASE
     Dosage: DAILY DOSE:4000MG
  3. TOPROL-XL [Concomitant]
     Dosage: DAILY DOSE:100MG
  4. LIPITOR [Concomitant]
  5. LOSARTAN POTASSIUM [Concomitant]

REACTIONS (4)
  - ABDOMINAL PAIN UPPER [None]
  - BACTERAEMIA [None]
  - CYSTITIS [None]
  - DYSURIA [None]
